FAERS Safety Report 14911212 (Version 1)
Quarter: 2018Q2

REPORT INFORMATION
  Report Type: Report from Study
  Country: None (occurrence: US)
  Receive Date: 20180518
  Receipt Date: 20180518
  Transmission Date: 20180711
  Serious: Yes (Hospitalization, Other)
  Sender: FDA-Public Use
  Company Number: US-ABBVIE-18K-163-2343386-00

PATIENT
  Age: 55 Year
  Sex: Male

DRUGS (2)
  1. ASPIRIN. [Concomitant]
     Active Substance: ASPIRIN
     Indication: PRODUCT USED FOR UNKNOWN INDICATION
  2. HUMIRA [Suspect]
     Active Substance: ADALIMUMAB
     Indication: CROHN^S DISEASE
     Route: 058
     Dates: start: 2016, end: 201706

REACTIONS (13)
  - Thrombosis [Not Recovered/Not Resolved]
  - Crohn^s disease [Recovering/Resolving]
  - Aortic aneurysm [Not Recovered/Not Resolved]
  - Procedural pain [Unknown]
  - Asthenia [Recovering/Resolving]
  - Gait inability [Not Recovered/Not Resolved]
  - Fear of injection [Recovered/Resolved]
  - Feeling abnormal [Recovering/Resolving]
  - Thrombosis [Recovering/Resolving]
  - Hypoaesthesia [Recovering/Resolving]
  - Splenic thrombosis [Not Recovered/Not Resolved]
  - Device difficult to use [Not Recovered/Not Resolved]
  - Pain in extremity [Not Recovered/Not Resolved]

NARRATIVE: CASE EVENT DATE: 2017
